FAERS Safety Report 9265400 (Version 1)
Quarter: 2013Q2

REPORT INFORMATION
  Report Type: Spontaneous
  Country: US (occurrence: US)
  Receive Date: 20130501
  Receipt Date: 20130501
  Transmission Date: 20140414
  Serious: Yes (Other)
  Sender: FDA-Public Use
  Company Number: US-SANOFI-AVENTIS-2013SA043663

PATIENT
  Age: 93 Year
  Sex: Female

DRUGS (3)
  1. LASIX [Suspect]
  2. TIKOSYN [Concomitant]
  3. NORVASC [Concomitant]

REACTIONS (2)
  - Atrial fibrillation [Unknown]
  - Feeling abnormal [Unknown]
